FAERS Safety Report 5763277-6 (Version None)
Quarter: 2008Q2

REPORT INFORMATION
  Report Type: 
  Country: None (occurrence: None)
  Receive Date: 20080602
  Receipt Date: 20080327
  Transmission Date: 20081010
  Serious: No
  Sender: FDA-Public Use
  Company Number: PHEH2008US02774

PATIENT
  Age: 78 Year
  Sex: Male

DRUGS (3)
  1. TEKTURNA [Suspect]
     Indication: HYPERTENSION
     Dosage: 150 MG, QD, ORAL
     Route: 048
     Dates: start: 20080320, end: 20080101
  2. AVAPRO [Suspect]
  3. ASPIRIN [Concomitant]

REACTIONS (2)
  - FLANK PAIN [None]
  - RENAL PAIN [None]
